FAERS Safety Report 5080548-X (Version None)
Quarter: 2006Q3

REPORT INFORMATION
  Report Type: 
  Country: None (occurrence: None)
  Receive Date: 20060807
  Receipt Date: 20060724
  Transmission Date: 20061208
  Serious: Yes (Hospitalization)
  Sender: FDA-Public Use
  Company Number: 2005BH001761

PATIENT
  Age: 39 Year
  Sex: Female

DRUGS (1)
  1. GAMMAGARD S/D [Suspect]
     Indication: COMBINED IMMUNODEFICIENCY
     Dosage: IV
     Route: 042
     Dates: start: 20050909, end: 20050909

REACTIONS (1)
  - MYOCARDIAL INFARCTION [None]
